FAERS Safety Report 4847476-3 (Version None)
Quarter: 2005Q4

REPORT INFORMATION
  Report Type: 
  Country: None (occurrence: None)
  Receive Date: 20051205
  Receipt Date: 20051116
  Transmission Date: 20060501
  Serious: Yes (Hospitalization)
  Sender: FDA-Public Use
  Company Number: ENT-2005-0144

PATIENT
  Age: 79 Year
  Sex: Male

DRUGS (7)
  1. COMTESS (ENTACAPONE) [Suspect]
     Indication: PARKINSON'S DISEASE
     Dosage: 1200 MG (200 MG, 6 IN 1 D)
     Route: 048
     Dates: start: 20051012
  2. AMANTADINE HCL [Concomitant]
  3. TEMAZEPAM [Concomitant]
  4. BENZHEXOL [Concomitant]
  5. ROPINIROLE [Concomitant]
  6. LACTULOSE [Concomitant]
  7. CO-BENELDOPA [Concomitant]

REACTIONS (3)
  - DISEASE PROGRESSION [None]
  - DYSPHAGIA [None]
  - PARKINSON'S DISEASE [None]
